FAERS Safety Report 8976008 (Version 1)
Quarter: 2012Q4

REPORT INFORMATION
  Report Type: 
  Country: FR (occurrence: FR)
  Receive Date: 20121219
  Receipt Date: 20121219
  Transmission Date: 20130627
  Serious: Yes (Hospitalization)
  Sender: FDA-Public Use
  Company Number: PHHY2012FR023888

PATIENT
  Age: 84 Year
  Sex: Female
  Weight: 43 kg

DRUGS (13)
  1. VANCOMYCIN SANDOZ [Suspect]
     Indication: URINARY TRACT INFECTION
     Dosage: UNK UKN, UNK
     Route: 042
     Dates: start: 20120128, end: 20120214
  2. CALCIPARINE [Concomitant]
     Dosage: 2 DF, QD
  3. CORDARONE [Concomitant]
     Dosage: 2 DF, QD
  4. PRAVASTATIN [Concomitant]
     Dosage: 1 DF, QD
  5. DOLIPRANE [Concomitant]
  6. DIFFU K [Concomitant]
     Dosage: 6 DF, QD
  7. RAMIPRIL [Concomitant]
     Dosage: 2 DF, QD
  8. STILNOX [Concomitant]
     Dosage: 0.5 DF, QD
  9. VASTEN [Concomitant]
     Dosage: 1 DF, QD
  10. LASILIX [Concomitant]
     Dosage: 1 DF, QD
  11. KREDEX [Concomitant]
     Dosage: 2 DF, QD
  12. FORTIMEL [Concomitant]
     Dosage: UNK UKN, UNK
  13. FORTIMEL [Concomitant]
     Dosage: UNK

REACTIONS (6)
  - Renal failure acute [Recovered/Resolved]
  - Rash morbilliform [Recovered/Resolved]
  - Hyperkalaemia [Recovered/Resolved]
  - Pruritus [Recovered/Resolved]
  - Rash generalised [Recovered/Resolved]
  - Eosinophilia [Recovered/Resolved]
